FAERS Safety Report 7106103-5 (Version None)
Quarter: 2010Q4

REPORT INFORMATION
  Report Type: 
  Country: None (occurrence: None)
  Receive Date: 20101116
  Receipt Date: 20101103
  Transmission Date: 20110411
  Serious: Yes (Other)
  Sender: FDA-Public Use
  Company Number: GB-MYLANLABS-2010S1020275

PATIENT
  Sex: Female

DRUGS (4)
  1. CLARITHROMYCIN [Suspect]
     Indication: PRODUCT USED FOR UNKNOWN INDICATION
  2. CORTISONE [Suspect]
     Indication: PRODUCT USED FOR UNKNOWN INDICATION
  3. INFLUENZA VIRUS [Suspect]
     Indication: PROPHYLAXIS
     Dates: start: 20091001, end: 20091001
  4. PANDEMRIX [Suspect]
     Indication: PROPHYLAXIS
     Dates: start: 20091101, end: 20091101

REACTIONS (6)
  - ARTHRALGIA [None]
  - ASTHMA [None]
  - FATIGUE [None]
  - HYPERSENSITIVITY [None]
  - ILL-DEFINED DISORDER [None]
  - RHINITIS PERENNIAL [None]
